FAERS Safety Report 8502062-9 (Version None)
Quarter: 2012Q3

REPORT INFORMATION
  Report Type: 
  Country: None (occurrence: None)
  Receive Date: 20120711
  Receipt Date: 20120621
  Transmission Date: 20120928
  Serious: No
  Sender: FDA-Public Use
  Company Number: CA-JNJFOC-20120612359

PATIENT
  Sex: Male
  Weight: 74 kg

DRUGS (4)
  1. IMURAN [Concomitant]
     Route: 065
  2. REMICADE [Suspect]
     Indication: COLITIS ULCERATIVE
     Route: 042
     Dates: start: 20070101
  3. PANTOPRAZOLE SODIUM [Concomitant]
     Route: 065
  4. CETIRIZINE HCL [Concomitant]
     Route: 065

REACTIONS (5)
  - FATIGUE [None]
  - VOMITING [None]
  - NAUSEA [None]
  - PYREXIA [None]
  - INFLUENZA [None]
